FAERS Safety Report 7446645-6 (Version None)
Quarter: 2011Q2

REPORT INFORMATION
  Report Type: 
  Country: None (occurrence: None)
  Receive Date: 20110419
  Receipt Date: 20110408
  Transmission Date: 20111010
  Serious: Yes (Hospitalization)
  Sender: FDA-Public Use
  Company Number: ACO_23192_2011

PATIENT
  Age: 39 Year
  Sex: Female

DRUGS (1)
  1. AMPYRA [Suspect]
     Indication: MULTIPLE SCLEROSIS
     Dates: start: 20101201, end: 20110301

REACTIONS (3)
  - PNEUMONIA [None]
  - WHITE BLOOD CELL COUNT INCREASED [None]
  - MULTIPLE SCLEROSIS RELAPSE [None]
